FAERS Safety Report 23790412 (Version 1)
Quarter: 2024Q2

REPORT INFORMATION
  Report Type: Spontaneous
  Country: IT (occurrence: IT)
  Receive Date: 20240427
  Receipt Date: 20240427
  Transmission Date: 20240716
  Serious: Yes (Other)
  Sender: FDA-Public Use
  Company Number: None

PATIENT
  Age: 75 Year
  Sex: Male

DRUGS (4)
  1. FLUOROURACIL [Suspect]
     Active Substance: FLUOROURACIL
     Indication: Colon cancer metastatic
     Dosage: START OF THERAPY 22/11/2023 - THERAPY EVERY 14 DAYS - 9TH CYCLE - BOLUS INFUSION.?DRUG ALSO ADMIN...
     Route: 042
     Dates: start: 20240315, end: 20240315
  2. OXALIPLATIN [Suspect]
     Active Substance: OXALIPLATIN
     Indication: Colon cancer metastatic
     Dosage: START OF THERAPY 22/11/2023 - THERAPY EVERY 14 DAYS - 9 CYCLE
     Route: 042
     Dates: start: 20240315, end: 20240315
  3. LEVOLEUCOVORIN [Concomitant]
     Active Substance: LEVOLEUCOVORIN
     Indication: Product used for unknown indication
     Route: 065
  4. BEVACIZUMAB [Suspect]
     Active Substance: BEVACIZUMAB
     Indication: Colon cancer metastatic
     Dosage: START OF THERAPY 22/11/2023 - THERAPY EVERY 14 DAYS - 9 CYCLE
     Route: 042
     Dates: start: 20240315, end: 20240315

REACTIONS (2)
  - Neutropenia [Recovering/Resolving]
  - Leukopenia [Recovering/Resolving]

NARRATIVE: CASE EVENT DATE: 20240320
